FAERS Safety Report 19138759 (Version 1)
Quarter: 2021Q2

REPORT INFORMATION
  Report Type: Spontaneous
  Country: NL (occurrence: NL)
  Receive Date: 20210415
  Receipt Date: 20210415
  Transmission Date: 20210717
  Serious: Yes (Other)
  Sender: FDA-Public Use
  Company Number: NL-AUROBINDO-AUR-APL-2021-014272

PATIENT
  Age: 27 Year
  Sex: Female
  Weight: 115 kg

DRUGS (2)
  1. MIRTAZAPINE OD TABLETS 15 MG [Suspect]
     Active Substance: MIRTAZAPINE
     Indication: PRODUCT USED FOR UNKNOWN INDICATION
     Dosage: 15 MILLIGRAM 1X PER DAG 1 STUK
     Route: 065
     Dates: start: 20210218
  2. PFIZER?BIONTECH COVID?19 VACCINE [Suspect]
     Active Substance: TOZINAMERAN
     Indication: COVID-19 IMMUNISATION
     Dosage: 1 DOSAGE FORM
     Route: 065
     Dates: start: 20210224

REACTIONS (7)
  - Pyrexia [Not Recovered/Not Resolved]
  - Malaise [Not Recovered/Not Resolved]
  - Fatigue [Not Recovered/Not Resolved]
  - Injection site pain [Not Recovered/Not Resolved]
  - Myalgia [Not Recovered/Not Resolved]
  - Chills [Recovering/Resolving]
  - Headache [Not Recovered/Not Resolved]

NARRATIVE: CASE EVENT DATE: 20210224
